FAERS Safety Report 7229309-3 (Version None)
Quarter: 2011Q1

REPORT INFORMATION
  Report Type: 
  Country: None (occurrence: None)
  Receive Date: 20110117
  Receipt Date: 20110111
  Transmission Date: 20110831
  Serious: Yes (Life-Threatening, Hospitalization)
  Sender: FDA-Public Use
  Company Number: SE-CELGENEUS-150-C5013-10122377

PATIENT
  Sex: Male
  Weight: 91 kg

DRUGS (20)
  1. OMEPRAZOLE [Concomitant]
     Indication: GASTRITIS PROPHYLAXIS
     Route: 048
     Dates: start: 20101007
  2. SUPREFACT [Concomitant]
     Indication: PROSTATE CANCER
     Route: 058
     Dates: start: 20070614
  3. DOCETAXEL [Suspect]
     Route: 065
     Dates: start: 20101202, end: 20110105
  4. ENALAPRIL [Concomitant]
     Indication: HYPERTENSION
     Route: 048
     Dates: start: 20100330
  5. DIKLOFENAK [Concomitant]
     Indication: GOUT
     Route: 048
     Dates: start: 20010611
  6. METOCLOPRAMIDE [Concomitant]
     Route: 048
     Dates: start: 20101007
  7. ONDANSETRON [Concomitant]
     Route: 048
     Dates: start: 20101007
  8. BENDROFLUMETHIAZIDE [Concomitant]
     Indication: HYPERTENSION
     Route: 048
     Dates: start: 20040317
  9. ATENOLOL [Concomitant]
     Indication: HYPERTENSION
     Route: 048
     Dates: start: 19991221
  10. SERTRALIN [Concomitant]
     Indication: DEPRESSION
     Route: 048
     Dates: start: 20101125
  11. CIALIS [Concomitant]
     Indication: ERECTILE DYSFUNCTION
     Route: 048
     Dates: start: 20060321, end: 20101124
  12. SERTRALIN [Concomitant]
     Indication: ANXIETY
     Route: 065
     Dates: start: 20101222
  13. DOCETAXEL [Suspect]
     Indication: PROSTATE CANCER
     Route: 065
     Dates: start: 20101011
  14. FOLIC ACID [Concomitant]
     Route: 048
     Dates: start: 20090909
  15. PREDNISONE [Suspect]
     Indication: PROSTATE CANCER
     Route: 065
     Dates: start: 20101011
  16. PREDNISONE [Suspect]
     Route: 065
     Dates: start: 20101202, end: 20110105
  17. CYANOCOBALAMIN [Concomitant]
     Route: 048
     Dates: start: 20090909
  18. SIMVASTATIN [Concomitant]
     Route: 048
     Dates: start: 20040317
  19. CC-5013\PLACEBO [Suspect]
     Indication: PROSTATE CANCER
     Route: 048
  20. DALTEPARIN SODIUM [Concomitant]
     Indication: PULMONARY EMBOLISM
     Route: 058
     Dates: start: 20101124

REACTIONS (3)
  - DYSPNOEA [None]
  - PNEUMOCYSTIS JIROVECI INFECTION [None]
  - FATIGUE [None]
